FAERS Safety Report 10550863 (Version 1)
Quarter: 2014Q4

REPORT INFORMATION
  Report Type: Spontaneous
  Country: JP (occurrence: None)
  Receive Date: 20141027
  Receipt Date: 20141027
  Transmission Date: 20150529
  Serious: Yes (Hospitalization)
  Sender: FDA-Public Use
  Company Number: JP-017450

PATIENT
  Sex: Male

DRUGS (4)
  1. TRAZENTA [Concomitant]
     Active Substance: LINAGLIPTIN
  2. BICALUTAMIDE. [Concomitant]
     Active Substance: BICALUTAMIDE
  3. DEGARELIX (GONAX) 80 MG [Suspect]
     Active Substance: DEGARELIX
     Indication: PROSTATE CANCER
     Dosage: 1X/4 WEEKS
     Route: 058
     Dates: start: 201405, end: 20141001
  4. MUCOSOLVAN [Concomitant]
     Active Substance: AMBROXOL\CLENBUTEROL

REACTIONS (1)
  - Interstitial lung disease [None]

NARRATIVE: CASE EVENT DATE: 20141001
